FAERS Safety Report 10802199 (Version 2)
Quarter: 2015Q1

REPORT INFORMATION
  Report Type: Spontaneous
  Country: MX (occurrence: MX)
  Receive Date: 20150217
  Receipt Date: 20150325
  Transmission Date: 20150721
  Serious: Yes (Other)
  Sender: FDA-Public Use
  Company Number: MX-SA-2015SA015616

PATIENT
  Sex: Female

DRUGS (3)
  1. TRENTAL [Suspect]
     Active Substance: PENTOXIFYLLINE
     Route: 065
  2. DAFLON [Suspect]
     Active Substance: DIOSMIN\HESPERIDIN
     Dosage: FORM- MICRONIZED PURIFIED FRACTION FLAVONOID
     Route: 065
  3. CAUDALINE [Suspect]
     Active Substance: CILOSTAZOL
     Dosage: STRENGTH-100 MG
     Route: 065

REACTIONS (6)
  - Arthralgia [Unknown]
  - Inflammation [Unknown]
  - Fall [Unknown]
  - Peripheral swelling [Unknown]
  - Pelvic fracture [Unknown]
  - Pain in extremity [Unknown]
